FAERS Safety Report 8131005-5 (Version None)
Quarter: 2012Q1

REPORT INFORMATION
  Report Type: 
  Country: None (occurrence: None)
  Receive Date: 20120208
  Receipt Date: 20120208
  Transmission Date: 20120608
  Serious: Yes (Other)
  Sender: FDA-Public Use
  Company Number: None

PATIENT
  Sex: Male

DRUGS (1)
  1. ATRIPLA [Suspect]
     Indication: HIV INFECTION
     Dosage: ONE DAILY ORAL
     Route: 048
     Dates: start: 20120203, end: 20120203

REACTIONS (2)
  - HOT FLUSH [None]
  - BURNING SENSATION [None]
